FAERS Safety Report 20561669 (Version 1)
Quarter: 2022Q1

REPORT INFORMATION
  Report Type: Spontaneous
  Country: US (occurrence: None)
  Receive Date: 20220305
  Receipt Date: 20220305
  Transmission Date: 20220423
  Serious: Yes (Other)
  Sender: FDA-Public Use
  Company Number: None

PATIENT
  Age: 30 Year
  Sex: Male
  Weight: 92.25 kg

DRUGS (1)
  1. DEXTROAMPHETAMINE SULFATE [Suspect]
     Active Substance: DEXTROAMPHETAMINE SULFATE
     Indication: Product used for unknown indication
     Dosage: OTHER QUANTITY : 60 TABLET(S);?FREQUENCY : 4 TIMES A DAY;?
     Route: 048
     Dates: start: 20220304, end: 20220305

REACTIONS (8)
  - Drug ineffective [None]
  - Product substitution issue [None]
  - Muscle spasms [None]
  - Neuralgia [None]
  - Feeling abnormal [None]
  - Depression [None]
  - Anger [None]
  - Suspected product quality issue [None]

NARRATIVE: CASE EVENT DATE: 20220305
